FAERS Safety Report 10915649 (Version 1)
Quarter: 2015Q1

REPORT INFORMATION
  Report Type: Spontaneous
  Country: US (occurrence: None)
  Receive Date: 20150311
  Receipt Date: 20150311
  Transmission Date: 20150721
  Serious: No
  Sender: FDA-Public Use
  Company Number: None

PATIENT

DRUGS (4)
  1. ATORVASTATIN [Concomitant]
     Active Substance: ATORVASTATIN
  2. LEVOBUNOLO [Concomitant]
  3. LATANOPROST. [Concomitant]
     Active Substance: LATANOPROST
  4. LOSARTAN [Suspect]
     Active Substance: LOSARTAN

REACTIONS (1)
  - Glaucoma [None]
